FAERS Safety Report 6559565-6 (Version None)
Quarter: 2010Q1

REPORT INFORMATION
  Report Type: 
  Country: None (occurrence: None)
  Receive Date: 20100129
  Receipt Date: 20090831
  Transmission Date: 20100710
  Serious: No
  Sender: FDA-Public Use
  Company Number: US-ABBOTT-09P-163-0595445-00

PATIENT
  Sex: Male

DRUGS (3)
  1. HUMIRA [Suspect]
     Indication: PSORIASIS
     Dates: start: 20080101
  2. METFORMIN [Concomitant]
     Indication: DIABETES MELLITUS
  3. UNKNOWN HEART MEDICATIONS [Concomitant]
     Indication: CARDIAC DISORDER
     Dosage: THE PATIENT REPORTED THERE WERE TO MANY TO LIST

REACTIONS (5)
  - INJECTION SITE ANAESTHESIA [None]
  - INJECTION SITE NODULE [None]
  - INJECTION SITE PARAESTHESIA [None]
  - INJECTION SITE SWELLING [None]
  - WRONG TECHNIQUE IN DRUG USAGE PROCESS [None]
